FAERS Safety Report 8733078 (Version 2)
Quarter: 2012Q4

REPORT INFORMATION
  Report Type: 
  Country: US (occurrence: US)
  Receive Date: 20120820
  Receipt Date: 20120830
  Transmission Date: 20130627
  Serious: Yes (Hospitalization)
  Sender: FDA-Public Use
  Company Number: US-GILEAD-2012-0059871

PATIENT
  Sex: Male

DRUGS (3)
  1. LETAIRIS [Suspect]
     Indication: PULMONARY HYPERTENSION
     Dosage: 10 mg, UNK
     Route: 048
     Dates: start: 20120723
  2. LETAIRIS [Suspect]
     Indication: DRUG ABUSER
  3. LETAIRIS [Suspect]
     Indication: SUBSTANCE ABUSE

REACTIONS (2)
  - Gastric haemorrhage [Unknown]
  - Colonoscopy [Unknown]
